FAERS Safety Report 12462531 (Version 2)
Quarter: 2016Q3

REPORT INFORMATION
  Report Type: Spontaneous
  Country: US (occurrence: US)
  Receive Date: 20160614
  Receipt Date: 20160713
  Transmission Date: 20161109
  Serious: Yes (Hospitalization, Disabling, Other)
  Sender: FDA-Public Use
  Company Number: US-009507513-1606USA005176

PATIENT
  Age: 76 Year
  Sex: Male
  Weight: 74.74 kg

DRUGS (1)
  1. KEYTRUDA [Suspect]
     Active Substance: PEMBROLIZUMAB
     Indication: NON-SMALL CELL LUNG CANCER
     Dosage: 162 MG, Q28D
     Route: 042
     Dates: start: 20160603

REACTIONS (10)
  - Pneumothorax [Unknown]
  - Atelectasis [Unknown]
  - Acute left ventricular failure [Unknown]
  - Brain natriuretic peptide increased [Unknown]
  - Chronic obstructive pulmonary disease [Unknown]
  - Blood potassium decreased [Unknown]
  - Weight increased [Recovering/Resolving]
  - Bronchitis [Unknown]
  - Pneumonia [Unknown]
  - Malignant pleural effusion [Not Recovered/Not Resolved]

NARRATIVE: CASE EVENT DATE: 20160603
